FAERS Safety Report 4758117-8 (Version None)
Quarter: 2005Q3

REPORT INFORMATION
  Report Type: 
  Country: None (occurrence: None)
  Receive Date: 20050829
  Receipt Date: 20050818
  Transmission Date: 20060218
  Serious: Yes (Death, Hospitalization)
  Sender: FDA-Public Use
  Company Number: 2005084824

PATIENT
  Age: 83 Year
  Sex: Male
  Weight: 58 kg

DRUGS (12)
  1. ZOLOFT [Suspect]
     Indication: ILL-DEFINED DISORDER
     Dosage: ORAL
     Route: 048
     Dates: start: 20050401, end: 20050519
  2. DEBRIDAT (TRIMEBUTINE) [Suspect]
     Indication: ILL-DEFINED DISORDER
     Dosage: 1 IN 1 D, ORAL
     Route: 048
     Dates: end: 20050408
  3. ACETAMINOPHEN [Suspect]
     Indication: ILL-DEFINED DISORDER
     Dosage: 1 GRAM (500 MG, 1 IN 1 D), ORAL
     Route: 048
     Dates: end: 20050408
  4. VOLTAREN [Suspect]
     Indication: ILL-DEFINED DISORDER
     Dosage: 50 MG (50 MG, 1 IN 1 D), ORAL
     Route: 048
     Dates: end: 20050408
  5. PLAVIX [Suspect]
     Indication: ILL-DEFINED DISORDER
     Dosage: 75 MG (75 MG, 1 IN 1 D), ORAL
     Route: 048
     Dates: end: 20050408
  6. DIGOXIN [Suspect]
     Indication: ILL-DEFINED DISORDER
     Dosage: 0.125 MG (0.125 MG, 1 IN 1 D), ORAL
     Route: 048
     Dates: end: 20050408
  7. CORDARONE [Concomitant]
  8. KARDEGIC (ACETYLSALICYLATE LYSINE) [Concomitant]
  9. LORAZEPAM [Concomitant]
  10. DICLOFENAC SODIUM [Concomitant]
  11. CLOPIDOGREL BISULFATE [Concomitant]
  12. TRIMEBUTINE MALEATE (TRIMEBUTINE MALEATE) [Concomitant]

REACTIONS (13)
  - COMA [None]
  - CONDITION AGGRAVATED [None]
  - CONFUSIONAL STATE [None]
  - DISTURBANCE IN ATTENTION [None]
  - HAEMATOCRIT DECREASED [None]
  - HYPONATRAEMIA [None]
  - INFLAMMATION [None]
  - LUNG DISORDER [None]
  - NERVOUS SYSTEM DISORDER [None]
  - PROTEIN TOTAL DECREASED [None]
  - PYREXIA [None]
  - QUADRIPARESIS [None]
  - URINE SODIUM DECREASED [None]
